FAERS Safety Report 6424152-7 (Version None)
Quarter: 2009Q4

REPORT INFORMATION
  Report Type: 
  Country: None (occurrence: None)
  Receive Date: 20091102
  Receipt Date: 20091023
  Transmission Date: 20100525
  Serious: Yes (Hospitalization, Other)
  Sender: FDA-Public Use
  Company Number: US-ABBOTT-09P-163-0599300-00

PATIENT
  Sex: Male

DRUGS (5)
  1. HUMIRA [Suspect]
     Indication: CROHN'S DISEASE
     Route: 058
     Dates: start: 20080401, end: 20081001
  2. HUMIRA [Suspect]
     Route: 058
     Dates: start: 20081101
  3. HUMIRA [Suspect]
     Route: 058
     Dates: start: 20090401
  4. PREDNISONE [Concomitant]
     Indication: CROHN'S DISEASE
     Route: 048
  5. AZASAN [Concomitant]
     Indication: INFECTION

REACTIONS (5)
  - ANAL FISTULA [None]
  - DIARRHOEA [None]
  - DRUG INEFFECTIVE [None]
  - INGUINAL HERNIA [None]
  - PAIN [None]
